FAERS Safety Report 22892098 (Version 2)
Quarter: 2023Q4

REPORT INFORMATION
  Report Type: Spontaneous
  Country: US (occurrence: None)
  Receive Date: 20230901
  Receipt Date: 20231028
  Transmission Date: 20240110
  Serious: No
  Sender: FDA-Public Use
  Company Number: 2023A198841

PATIENT
  Age: 900 Month
  Sex: Female

DRUGS (1)
  1. TEZSPIRE [Suspect]
     Active Substance: TEZEPELUMAB-EKKO
     Indication: Asthma
     Route: 058
     Dates: start: 20220425, end: 20230801

REACTIONS (2)
  - Bone pain [Unknown]
  - Rash [Unknown]

NARRATIVE: CASE EVENT DATE: 20230701
